FAERS Safety Report 15482330 (Version 1)
Quarter: 2018Q4

REPORT INFORMATION
  Report Type: Spontaneous
  Country: US (occurrence: US)
  Receive Date: 20181010
  Receipt Date: 20181010
  Transmission Date: 20190205
  Serious: No
  Sender: FDA-Public Use
  Company Number: US-BAYER-2018-182575

PATIENT
  Sex: Female

DRUGS (3)
  1. ALEVE [Suspect]
     Active Substance: NAPROXEN SODIUM
     Route: 065
  2. BAYER ASPIRIN [Suspect]
     Active Substance: ASPIRIN
     Indication: BACK INJURY
     Route: 065
  3. BAYER ASPIRIN [Suspect]
     Active Substance: ASPIRIN
     Route: 065

REACTIONS (5)
  - Drug ineffective [None]
  - Poor quality product administered [Unknown]
  - Product use in unapproved indication [Unknown]
  - Abdominal discomfort [Unknown]
  - Product contamination physical [Unknown]
